FAERS Safety Report 9422342 (Version 1)
Quarter: 2013Q3

REPORT INFORMATION
  Report Type: Spontaneous
  Country: DE (occurrence: DE)
  Receive Date: 20130726
  Receipt Date: 20130726
  Transmission Date: 20140515
  Serious: Yes (Death, Hospitalization)
  Sender: FDA-Public Use
  Company Number: DE-BAYER-2013-086655

PATIENT
  Age: 48 Year
  Sex: Male

DRUGS (5)
  1. ACETYLSALICYLIC ACID({=100 MG) [Suspect]
     Indication: CARDIAC FAILURE
     Dosage: 100MG/DAY
  2. ACETYLSALICYLIC ACID({=100 MG) [Suspect]
     Indication: ANTIPLATELET THERAPY
  3. CLOPIDOGREL [Suspect]
     Indication: CARDIAC FAILURE
     Dosage: 75MG/DAY
  4. CLOPIDOGREL [Suspect]
     Indication: ANTIPLATELET THERAPY
  5. PHENPROCOUMON [Suspect]

REACTIONS (3)
  - Post procedural haemorrhage [Fatal]
  - Traumatic intracranial haemorrhage [None]
  - Labelled drug-drug interaction medication error [None]
